FAERS Safety Report 17868459 (Version 15)
Quarter: 2022Q4

REPORT INFORMATION
  Report Type: Other
  Country: GB (occurrence: GB)
  Receive Date: 20200606
  Receipt Date: 20221018
  Transmission Date: 20230113
  Serious: Yes (Hospitalization, Other)
  Sender: FDA-Public Use
  Company Number: GB-MACLEODS PHARMACEUTICALS US LTD-MAC2020026669

PATIENT

DRUGS (42)
  1. EMTRICITABINE\TENOFOVIR DISOPROXIL [Suspect]
     Active Substance: EMTRICITABINE\TENOFOVIR DISOPROXIL
     Indication: HIV infection
     Dosage: 1 DOSAGE FORM, QD, ABUSE
     Route: 048
     Dates: start: 20171006
  2. EMTRICITABINE\TENOFOVIR DISOPROXIL [Suspect]
     Active Substance: EMTRICITABINE\TENOFOVIR DISOPROXIL
     Indication: Supplementation therapy
     Dosage: 1 DOSAGE FORM, QD
     Route: 048
     Dates: start: 20180205, end: 20180205
  3. EMTRICITABINE\TENOFOVIR DISOPROXIL [Suspect]
     Active Substance: EMTRICITABINE\TENOFOVIR DISOPROXIL
     Dosage: 1 DOSAGE FORM, QD
     Route: 048
     Dates: start: 20171006, end: 20180205
  4. METFORMIN [Suspect]
     Active Substance: METFORMIN HYDROCHLORIDE
     Indication: Product used for unknown indication
     Dosage: UNK; 1ST TRIMESTER, ABUSE
     Route: 048
  5. NEVIRAPINE [Suspect]
     Active Substance: NEVIRAPINE
     Indication: Antiviral treatment
     Dosage: 400 MILLIGRAM, QD; 1ST TRIMESTER, ABUSE
     Route: 048
     Dates: start: 20090101, end: 20100610
  6. LAMIVUDINE [Suspect]
     Active Substance: LAMIVUDINE
     Indication: Antiretroviral therapy
     Dosage: 300 MILLIGRAM, QD; 1ST TRIMESTER, DRUG ABUSE
     Route: 048
     Dates: start: 20090101, end: 20100610
  7. TENOFOVIR [Suspect]
     Active Substance: TENOFOVIR
     Indication: HIV infection
     Dosage: 300 MILLIGRAM, QD, DRUG ABUSE
     Route: 048
     Dates: start: 20180805
  8. TENOFOVIR [Suspect]
     Active Substance: TENOFOVIR
     Indication: Supplementation therapy
     Dosage: 1 DOSAGE FORM, QD
     Route: 048
     Dates: start: 20180205
  9. TENOFOVIR [Suspect]
     Active Substance: TENOFOVIR
     Dosage: 1 DOSAGE FORM, QD
     Route: 048
     Dates: start: 20171006, end: 20180205
  10. TENOFOVIR [Suspect]
     Active Substance: TENOFOVIR
     Dosage: 300 MILLIGRAM, QD
     Route: 048
     Dates: start: 20100610
  11. LABETALOL [Suspect]
     Active Substance: LABETALOL\LABETALOL HYDROCHLORIDE
     Indication: Product used for unknown indication
     Dosage: UNK
     Route: 048
  12. EFAVIRENZ [Suspect]
     Active Substance: EFAVIRENZ
     Indication: Product used for unknown indication
     Dosage: 1 DOSAGE FORM, QD, 1 TABLET/CAPSULE, DAILY, DRUG ABUSE AND MISUSE
     Route: 048
     Dates: start: 20171006, end: 20180205
  13. EFAVIRENZ [Suspect]
     Active Substance: EFAVIRENZ
     Indication: HIV infection
     Dosage: 1 DOSAGE FORM, QD, 1 TABLET/CAPSULE, DAILY
     Route: 048
     Dates: start: 20180205
  14. ZIDOVUDINE [Suspect]
     Active Substance: ZIDOVUDINE
     Indication: Product used for unknown indication
     Dosage: 600 MILLIGRAM, QD, DRUG ABUSE
     Route: 048
     Dates: start: 20090110, end: 20100610
  15. ZIDOVUDINE [Suspect]
     Active Substance: ZIDOVUDINE
     Indication: Antiviral treatment
     Dosage: 800 MILLIGRAM, QD
     Route: 048
     Dates: start: 20100610, end: 20100610
  16. EMTRICITABINE\TENOFOVIR DISOPROXIL [Suspect]
     Active Substance: EMTRICITABINE\TENOFOVIR DISOPROXIL
     Indication: HIV infection
     Dosage: 1 DOSAGE FORM, QD, 1 TABLET/CAPSULE, QD 1 {TRIMESTER}
     Route: 048
     Dates: start: 20171006, end: 20180205
  17. EMTRICITABINE\TENOFOVIR DISOPROXIL [Suspect]
     Active Substance: EMTRICITABINE\TENOFOVIR DISOPROXIL
     Dosage: 1 DOSAGE FORM, QD, TABLET
     Route: 048
     Dates: start: 20180205
  18. EMTRICITABINE\TENOFOVIR DISOPROXIL [Suspect]
     Active Substance: EMTRICITABINE\TENOFOVIR DISOPROXIL
     Dosage: 1 DOSAGE FORM, QD
     Route: 048
     Dates: start: 20180205
  19. INSULIN ASPART [Suspect]
     Active Substance: INSULIN ASPART
     Indication: Product used for unknown indication
     Dosage: UNK; 1ST TRIMESTER, DRUG ABUSE
     Route: 065
  20. INSULIN ASPART [Suspect]
     Active Substance: INSULIN ASPART
     Dosage: UNK (SUSPENSION FOR INJECTION)
     Route: 065
  21. INSULIN ASPART [Suspect]
     Active Substance: INSULIN ASPART
     Dosage: UNK; EXPOSED AT 1 WK, DRUG ABUSE
     Route: 048
  22. FOLATE SODIUM [Suspect]
     Active Substance: FOLATE SODIUM
     Indication: Supplementation therapy
     Dosage: UNK, DRUG ABUSE
     Route: 065
  23. FOLATE SODIUM [Suspect]
     Active Substance: FOLATE SODIUM
     Dosage: 1 DOSAGE FORM, QD (1 TABLET/CAPSULE, DAILY )
     Route: 048
  24. TRUVADA [Suspect]
     Active Substance: EMTRICITABINE\TENOFOVIR DISOPROXIL FUMARATE
     Indication: HIV infection
     Dosage: 1 DOSAGE FORM, QD (1 TABLET/CAPSULE, QD)
     Route: 048
     Dates: start: 20171006, end: 20180205
  25. TRUVADA [Suspect]
     Active Substance: EMTRICITABINE\TENOFOVIR DISOPROXIL FUMARATE
     Indication: Supplementation therapy
     Dosage: 1 DOSAGE FORM, QD, 1 TABLET/CAPSULE
     Route: 048
     Dates: start: 20180205
  26. TRUVADA [Suspect]
     Active Substance: EMTRICITABINE\TENOFOVIR DISOPROXIL FUMARATE
     Dosage: 1 DOSAGE FORM, QD (TABLET)
     Route: 048
  27. LOPINAVIR\RITONAVIR [Suspect]
     Active Substance: LOPINAVIR\RITONAVIR
     Indication: HIV infection
     Dosage: UNK (PATIENT WAS NOT TAKING MEDICINE AT CONCEPTION), DURING 1 {TRIMESTER}
     Route: 048
     Dates: start: 20100610
  28. LOPINAVIR\RITONAVIR [Suspect]
     Active Substance: LOPINAVIR\RITONAVIR
     Indication: Antiviral treatment
     Dosage: UNK (PATIENT WAS NOT TAKING MEDICINE AT CONCEPTION)
     Route: 065
     Dates: end: 20100610
  29. LOPINAVIR\RITONAVIR [Suspect]
     Active Substance: LOPINAVIR\RITONAVIR
     Indication: HIV infection
  30. ISENTRESS [Suspect]
     Active Substance: RALTEGRAVIR POTASSIUM
     Indication: HIV infection
     Dosage: 800 MILLIGRAM, QID (3200 QD)
     Route: 048
     Dates: start: 20100610
  31. KALETRA [Suspect]
     Active Substance: LOPINAVIR\RITONAVIR
     Indication: HIV infection
     Dosage: UNK
     Route: 048
     Dates: start: 20100610, end: 20100610
  32. KALETRA [Suspect]
     Active Substance: LOPINAVIR\RITONAVIR
     Indication: Antiviral treatment
  33. EFAVIRENZ [Suspect]
     Active Substance: EFAVIRENZ
     Indication: Product used for unknown indication
     Dosage: 1 DOSAGE FORM, QD (1 TABLET/CAPSULE)
     Route: 048
     Dates: start: 20171006
  34. EMTRICITABINE\TENOFOVIR DISOPROXIL [Suspect]
     Active Substance: EMTRICITABINE\TENOFOVIR DISOPROXIL
     Indication: HIV infection
     Dosage: 1 DOSAGE FORM, QD; 1ST TRIMESTER
     Route: 065
     Dates: start: 20171006
  35. EMTRICITABINE\TENOFOVIR DISOPROXIL [Suspect]
     Active Substance: EMTRICITABINE\TENOFOVIR DISOPROXIL
     Dosage: 1 DOSAGE FORM, QD 1ST TRIMESTER
     Route: 065
  36. EMTRICITABINE\TENOFOVIR DISOPROXIL [Suspect]
     Active Substance: EMTRICITABINE\TENOFOVIR DISOPROXIL
     Dosage: 1 DOSAGE FORM, QD; 1ST TRIMESTER
     Route: 048
  37. EMTRICITABINE\TENOFOVIR DISOPROXIL [Suspect]
     Active Substance: EMTRICITABINE\TENOFOVIR DISOPROXIL
     Dosage: 1 DOSAGE FORM, QD; 1ST TRIMESTER
     Route: 048
  38. VITAMIN B12 [Suspect]
     Active Substance: CYANOCOBALAMIN
     Indication: Supplementation therapy
     Dosage: UNK, Q.W.
     Route: 065
  39. VITAMIN B12 [Suspect]
     Active Substance: CYANOCOBALAMIN
     Dosage: UNK; 1ST TRIMESTER
     Route: 065
     Dates: start: 20100610
  40. RITONAVIR [Suspect]
     Active Substance: RITONAVIR
     Indication: HIV infection
     Dosage: UNK; 1ST TRIMESTER
     Route: 048
     Dates: start: 20100610
  41. RITONAVIR [Suspect]
     Active Substance: RITONAVIR
     Indication: Antiviral treatment
  42. LOPINAVIR [Suspect]
     Active Substance: LOPINAVIR
     Indication: Product used for unknown indication
     Dosage: UNK
     Route: 048
     Dates: start: 20100610

REACTIONS (10)
  - Aspartate aminotransferase increased [Unknown]
  - Alanine aminotransferase increased [Unknown]
  - Caesarean section [Unknown]
  - Hepatic cytolysis [Unknown]
  - Abortion spontaneous [Recovered/Resolved]
  - Hydrops foetalis [Recovered/Resolved]
  - Maternal exposure during pregnancy [Recovered/Resolved]
  - Intentional product use issue [Unknown]
  - Off label use [Unknown]
  - Drug abuse [Unknown]

NARRATIVE: CASE EVENT DATE: 20100629
